FAERS Safety Report 4639468-4 (Version None)
Quarter: 2005Q2

REPORT INFORMATION
  Report Type: 
  Country: None (occurrence: None)
  Receive Date: 20050418
  Receipt Date: 20050408
  Transmission Date: 20051028
  Serious: Yes (Hospitalization, Other)
  Sender: FDA-Public Use
  Company Number: GRWYE575712APR05

PATIENT
  Age: 48 Year
  Sex: Female

DRUGS (1)
  1. TAZOCIN (PIPERACILLIN/TAZOBACTAM, INJECTION) [Suspect]
     Indication: HYSTERECTOMY
     Dosage: 4.5 G 3X PER 1 DAY; INTRAVENOUS
     Route: 042
     Dates: start: 20050405, end: 20050406

REACTIONS (3)
  - ANAPHYLACTIC SHOCK [None]
  - DYSPNOEA [None]
  - POST PROCEDURAL COMPLICATION [None]
